FAERS Safety Report 10041148 (Version 2)
Quarter: 2014Q2

REPORT INFORMATION
  Report Type: Spontaneous
  Country: US (occurrence: FR)
  Receive Date: 20140327
  Receipt Date: 20140425
  Transmission Date: 20141212
  Serious: Yes (Hospitalization)
  Sender: FDA-Public Use
  Company Number: US-SA-2014SA036181

PATIENT
  Age: 56 Year
  Sex: Female
  Weight: 136.1 kg

DRUGS (14)
  1. LASIX [Suspect]
     Indication: HYPERTENSION
     Route: 048
     Dates: start: 20130216
  2. ANTINEOPLASTIC AGENTS [Suspect]
     Indication: MALIGNANT MELANOMA
     Route: 048
     Dates: start: 20131120
  3. VERAPAMIL HYDROCHLORIDE [Suspect]
     Indication: HYPERTENSION
     Route: 048
     Dates: start: 20131203
  4. LOPRESSOR [Suspect]
     Indication: HYPERTENSION
     Route: 048
     Dates: start: 20110127
  5. CAPTOPRIL [Suspect]
     Indication: HYPERTENSION
     Route: 048
     Dates: start: 20130216
  6. LYRICA [Concomitant]
     Indication: MYALGIA
     Route: 048
  7. LYRICA [Concomitant]
     Indication: DIABETES MELLITUS
     Route: 048
  8. ALLOPURINOL [Concomitant]
     Indication: BLOOD URIC ACID
     Route: 048
     Dates: start: 20131104
  9. ASPIRIN [Concomitant]
     Indication: PAIN
     Route: 048
     Dates: start: 20131104
  10. COLACE [Concomitant]
     Indication: CONSTIPATION
     Route: 048
     Dates: start: 20131104
  11. GLYBURIDE [Concomitant]
     Indication: DIABETES MELLITUS
     Route: 048
     Dates: start: 20131104
  12. METFORMIN [Concomitant]
     Indication: DIABETES MELLITUS
     Route: 048
     Dates: start: 20131104
  13. KLOR-CON [Concomitant]
     Indication: HYPOKALAEMIA
     Route: 048
     Dates: start: 20131104
  14. PRAVASTATIN SODIUM [Concomitant]
     Indication: OBESITY
     Route: 048
     Dates: start: 20131104

REACTIONS (3)
  - Sinus bradycardia [Recovering/Resolving]
  - Hyperkalaemia [Recovered/Resolved]
  - Hypotension [Recovered/Resolved]
